FAERS Safety Report 4737838-7 (Version None)
Quarter: 2005Q3

REPORT INFORMATION
  Report Type: 
  Country: None (occurrence: None)
  Receive Date: 20050803
  Receipt Date: 20050728
  Transmission Date: 20060218
  Serious: Yes (Hospitalization)
  Sender: FDA-Public Use
  Company Number: C05-T-127

PATIENT
  Age: 55 Year
  Sex: Male
  Weight: 89.8122 kg

DRUGS (5)
  1. ATENOLOL [Suspect]
     Indication: HYPERTENSION
     Dosage: 25 MG QD PO
     Route: 048
     Dates: start: 20050519, end: 20050713
  2. ADVIL [Concomitant]
  3. M.V.I. [Concomitant]
  4. ZOCOR [Concomitant]
  5. ALTACE [Concomitant]

REACTIONS (7)
  - AORTIC VALVE INCOMPETENCE [None]
  - CHEST PAIN [None]
  - CONDITION AGGRAVATED [None]
  - DILATATION ATRIAL [None]
  - DIZZINESS [None]
  - HYPERTENSION [None]
  - MITRAL VALVE INCOMPETENCE [None]
